FAERS Safety Report 8176778 (Version 5)
Quarter: 2013Q3

REPORT INFORMATION
  Report Type: Spontaneous
  Country: JP (occurrence: JP)
  Receive Date: 20111012
  Receipt Date: 20130830
  Transmission Date: 20140515
  Serious: Yes (Hospitalization)
  Sender: FDA-Public Use
  Company Number: JP-ABBOTT-11P-087-0861012-00

PATIENT
  Age: 79 Year
  Sex: Female
  Weight: 44 kg

DRUGS (9)
  1. HUMIRA 40 MG/ 0.8 ML PRE-FILLED SYRINGE [Suspect]
     Indication: RHEUMATOID ARTHRITIS
     Route: 058
     Dates: start: 20110812, end: 20110909
  2. BUCILLAMINE [Concomitant]
     Indication: RHEUMATOID ARTHRITIS
     Dosage: AFTER BREAKFAST AND DINNER
     Route: 048
  3. SALAZOSULFAPYRIDINE [Concomitant]
     Indication: RHEUMATOID ARTHRITIS
     Dosage: AFTER BREAKFAST AND DINNER
     Route: 048
  4. PREDNISONE [Concomitant]
     Dosage: AFTER BREAKFAST
     Route: 048
  5. MENATETRENONE [Concomitant]
     Dosage: AFTER BREAKFAST, LUNCH, AND DINNER
     Route: 048
  6. MECOBALAMIN [Concomitant]
     Dosage: AFTER BREAKFAST, LUNCH, AND DINNER
     Route: 048
  7. ALFACALCIDOL [Concomitant]
     Dosage: AFTER DINNER
     Route: 048
  8. TACROLIMUS HYDRATE [Concomitant]
     Indication: RHEUMATOID ARTHRITIS
     Dosage: AFTER DINNER
     Route: 048
  9. CELECOXIB [Concomitant]
     Dosage: AFTER BREAKFAST AND DINNER
     Route: 048

REACTIONS (2)
  - Nephrotic syndrome [Recovering/Resolving]
  - Pleural effusion [Unknown]
